FAERS Safety Report 7460996-0 (Version None)
Quarter: 2011Q2

REPORT INFORMATION
  Report Type: 
  Country: None (occurrence: None)
  Receive Date: 20110505
  Receipt Date: 20110422
  Transmission Date: 20111010
  Serious: Yes (Hospitalization, Other)
  Sender: FDA-Public Use
  Company Number: US-ELI_LILLY_AND_COMPANY-US201102004709

PATIENT
  Sex: Female

DRUGS (2)
  1. ANALGESICS [Concomitant]
     Indication: PAIN
     Dosage: UNK, OTHER
  2. FORTEO [Suspect]
     Indication: OSTEOPOROSIS
     Dosage: 20 UG, DAILY (1/D)
     Route: 065
     Dates: start: 20100201

REACTIONS (2)
  - HIP FRACTURE [None]
  - FALL [None]
